FAERS Safety Report 24905053 (Version 1)
Quarter: 2025Q1

REPORT INFORMATION
  Report Type: Spontaneous
  Country: CA (occurrence: CA)
  Receive Date: 20250130
  Receipt Date: 20250130
  Transmission Date: 20250409
  Serious: Yes (Death, Life-Threatening, Other)
  Sender: SANOFI AVENTIS
  Company Number: CA-SA-2024SA370610

PATIENT
  Age: 65 Year
  Sex: Female
  Weight: 86.18 kg

DRUGS (1)
  1. ADMELOG [Suspect]
     Active Substance: INSULIN LISPRO
     Indication: Type 1 diabetes mellitus
     Route: 051
     Dates: start: 2024, end: 2024

REACTIONS (4)
  - Death [Fatal]
  - Diabetes mellitus inadequate control [Recovered/Resolved]
  - Product substitution issue [Unknown]
  - Drug ineffective [Unknown]

NARRATIVE: CASE EVENT DATE: 20240101
